FAERS Safety Report 8891154 (Version 1)
Quarter: 2012Q4

REPORT INFORMATION
  Report Type: 
  Country: SE (occurrence: SE)
  Receive Date: 20121107
  Receipt Date: 20121107
  Transmission Date: 20130627
  Serious: Yes (Hospitalization)
  Sender: FDA-Public Use
  Company Number: SE-PFIZER INC-2012270785

PATIENT
  Age: 66 Year
  Sex: Male
  Weight: 133 kg

DRUGS (15)
  1. GENOTROPIN [Suspect]
     Dosage: 0.3 mg, 1x/day, 7 injections/week
     Route: 058
     Dates: start: 20041207
  2. LEVAXIN [Concomitant]
     Indication: HYPOTHYROIDISM
     Dosage: UNK
     Dates: start: 19940915
  3. TROMBYL [Concomitant]
     Indication: THROMBOSIS
     Dosage: UNK
     Dates: start: 20011030
  4. APROVEL [Concomitant]
     Indication: HYPERTENSION
     Dosage: UNK
     Dates: start: 20051010
  5. NEBIDO [Concomitant]
     Indication: LUTEINISING HORMONE DEFICIENCY
     Dosage: UNK
     Dates: start: 20060608
  6. NEBIDO [Concomitant]
     Indication: FOLLICLE-STIMULATING HORMONE DEFICIENCY
  7. NEBIDO [Concomitant]
     Indication: TESTICULAR HYPOGONADISM
  8. NOVORAPID [Concomitant]
     Indication: DIABETES MELLITUS
     Dosage: UNK
     Dates: start: 20090415
  9. AMLODIPIN [Concomitant]
     Indication: HYPERTENSION
     Dosage: UNK
     Dates: start: 20090612
  10. CARVEDIOL [Concomitant]
     Indication: HYPERTENSION
     Dosage: UNK
     Dates: start: 20090612
  11. PANTOLOC [Concomitant]
     Dosage: UNK
     Dates: start: 20090810
  12. SIMVASTATIN [Concomitant]
     Indication: HYPERLIPIDEMIA
     Dosage: UNK
     Dates: start: 20030625
  13. KALCIPOS-D [Concomitant]
     Dosage: UNK
     Dates: start: 20091210
  14. METFORMIN [Concomitant]
     Indication: DIABETES MELLITUS
     Dosage: UNK
     Dates: start: 20100930
  15. INSULATARD [Concomitant]
     Indication: DIABETES MELLITUS
     Dosage: UNK
     Dates: start: 20101122

REACTIONS (1)
  - Neck mass [Unknown]
